FAERS Safety Report 8235111-6 (Version None)
Quarter: 2012Q1

REPORT INFORMATION
  Report Type: 
  Country: None (occurrence: None)
  Receive Date: 20120322
  Receipt Date: 20120228
  Transmission Date: 20120608
  Serious: Yes (Death)
  Sender: FDA-Public Use
  Company Number: 2012S1000015

PATIENT
  Age: 50 Year
  Sex: Male

DRUGS (4)
  1. CORTICOSTEROIDS [Concomitant]
  2. ANTIHISTAMINES [Concomitant]
  3. KRYSTEXXA [Suspect]
     Indication: GOUT
     Dosage: 8 MG;IV
     Route: 042
     Dates: start: 20120201, end: 20120201
  4. PREDNISONE [Concomitant]

REACTIONS (2)
  - CARDIAC ARREST [None]
  - GASTROINTESTINAL HAEMORRHAGE [None]
